FAERS Safety Report 24323814 (Version 1)
Quarter: 2024Q3

REPORT INFORMATION
  Report Type: Spontaneous
  Country: US (occurrence: None)
  Receive Date: 20240914
  Receipt Date: 20240914
  Transmission Date: 20241017
  Serious: Yes (Other)
  Sender: Public
  Company Number: None

PATIENT
  Age: 20 Year
  Sex: Female
  Weight: 67.5 kg

DRUGS (1)
  1. SCOPOLAMINE TRANSDERMAL SYSTEM [Suspect]
     Active Substance: SCOPOLAMINE
     Dates: start: 20240910, end: 20240911

REACTIONS (7)
  - Dizziness [None]
  - Dizziness [None]
  - Vision blurred [None]
  - Palpitations [None]
  - Nausea [None]
  - Tremor [None]
  - Chest pain [None]

NARRATIVE: CASE EVENT DATE: 20240911
